FAERS Safety Report 8388140-6 (Version None)
Quarter: 2012Q2

REPORT INFORMATION
  Report Type: 
  Country: None (occurrence: None)
  Receive Date: 20120525
  Receipt Date: 20120516
  Transmission Date: 20120825
  Serious: Yes (Hospitalization)
  Sender: FDA-Public Use
  Company Number: US-ABBOTT-12P-163-0935833-00

PATIENT
  Sex: Female
  Weight: 43.13 kg

DRUGS (5)
  1. HUMIRA [Suspect]
     Indication: RHEUMATOID ARTHRITIS
     Dates: start: 20110101
  2. UNNAMED MEDICATION [Concomitant]
     Indication: INSOMNIA
  3. UNNAMED MEDICATION [Concomitant]
     Indication: PAIN
  4. UNNAMED MEDICATION [Concomitant]
     Indication: PRODUCT USED FOR UNKNOWN INDICATION
  5. UNNAMED MEDICATION [Concomitant]
     Indication: HYPERTENSION

REACTIONS (8)
  - EYE SWELLING [None]
  - EYE PAIN [None]
  - CONCUSSION [None]
  - SKULL FRACTURE [None]
  - ORAL INFECTION [None]
  - FALL [None]
  - MENTAL IMPAIRMENT [None]
  - VOMITING [None]
